FAERS Safety Report 6916527-4 (Version None)
Quarter: 2010Q3

REPORT INFORMATION
  Report Type: 
  Country: None (occurrence: None)
  Receive Date: 20100810
  Receipt Date: 20100727
  Transmission Date: 20110219
  Serious: Yes (Hospitalization, Other)
  Sender: FDA-Public Use
  Company Number: US-ELI_LILLY_AND_COMPANY-US201008000522

PATIENT
  Sex: Male

DRUGS (7)
  1. EFFIENT [Suspect]
     Indication: CORONARY ARTERIAL STENT INSERTION
     Dosage: 1 D/F, OTHER
     Dates: start: 20100702
  2. EFFIENT [Suspect]
     Dosage: 1 D/F, UNKNOWN
  3. COREG CR [Concomitant]
  4. CRESTOR [Concomitant]
  5. ZETIA [Concomitant]
  6. BENAZEPRIL [Concomitant]
  7. BUPROPION HCL [Concomitant]

REACTIONS (2)
  - ANAEMIA [None]
  - FAECES DISCOLOURED [None]
